FAERS Safety Report 23251646 (Version 1)
Quarter: 2023Q4

REPORT INFORMATION
  Report Type: Spontaneous
  Country: CN (occurrence: CN)
  Receive Date: 20231201
  Receipt Date: 20231201
  Transmission Date: 20240110
  Serious: Yes (Other)
  Sender: FDA-Public Use
  Company Number: CN-PFIZER INC-PV202300193216

PATIENT
  Age: 34 Year
  Sex: Female
  Weight: 53 kg

DRUGS (1)
  1. METHOTREXATE SODIUM [Suspect]
     Active Substance: METHOTREXATE SODIUM
     Indication: Ectopic pregnancy
     Dosage: 75 MG, SINGLE
     Route: 030
     Dates: start: 20231023, end: 20231023

REACTIONS (3)
  - Myocardial ischaemia [Unknown]
  - Chest discomfort [Recovering/Resolving]
  - Off label use [Unknown]

NARRATIVE: CASE EVENT DATE: 20231023
